FAERS Safety Report 22349008 (Version 3)
Quarter: 2023Q2

REPORT INFORMATION
  Report Type: Spontaneous
  Country: US (occurrence: US)
  Receive Date: 20230522
  Receipt Date: 20230612
  Transmission Date: 20230722
  Serious: Yes (Hospitalization, Other)
  Sender: FDA-Public Use
  Company Number: US-009507513-2305USA005009

PATIENT
  Sex: Female

DRUGS (2)
  1. WELIREG [Suspect]
     Active Substance: BELZUTIFAN
     Indication: Von Hippel-Lindau disease
     Dosage: 120 MILLIGRAM (THREE PILLS DAILY), ONCE DAILY (QD)
     Route: 048
     Dates: start: 20211013, end: 20211216
  2. WELIREG [Suspect]
     Active Substance: BELZUTIFAN
     Dosage: 80 MILLIGRAM (TWO PILLS), ONCE DAILY (QD)
     Route: 048
     Dates: start: 20221024

REACTIONS (15)
  - Brain operation [Unknown]
  - Brain operation [Recovering/Resolving]
  - Spinal cord operation [Recovering/Resolving]
  - Arrhythmia [Recovering/Resolving]
  - Neoplasm progression [Recovering/Resolving]
  - Hypoxia [Unknown]
  - Blood test abnormal [Recovering/Resolving]
  - Frustration tolerance decreased [Unknown]
  - Confusional state [Unknown]
  - Memory impairment [Not Recovered/Not Resolved]
  - Palpitations [Recovering/Resolving]
  - Somnolence [Recovering/Resolving]
  - Fatigue [Recovering/Resolving]
  - Anaemia [Unknown]
  - Dyspnoea [Recovering/Resolving]

NARRATIVE: CASE EVENT DATE: 20210101
